FAERS Safety Report 17819203 (Version 1)
Quarter: 2020Q2

REPORT INFORMATION
  Report Type: Spontaneous
  Country: FR (occurrence: FR)
  Receive Date: 20200523
  Receipt Date: 20200523
  Transmission Date: 20200714
  Serious: Yes (Death)
  Sender: FDA-Public Use
  Company Number: FR-ACCORD-182970

PATIENT
  Age: 80 Year
  Sex: Female

DRUGS (1)
  1. FLUOROURACIL. [Suspect]
     Active Substance: FLUOROURACIL
     Indication: PANCREATIC CARCINOMA
     Route: 042
     Dates: start: 20181003

REACTIONS (2)
  - Febrile bone marrow aplasia [Fatal]
  - Dihydropyrimidine dehydrogenase deficiency [Fatal]

NARRATIVE: CASE EVENT DATE: 201810
